FAERS Safety Report 10907779 (Version 1)
Quarter: 2015Q1

REPORT INFORMATION
  Report Type: Spontaneous
  Country: US (occurrence: None)
  Receive Date: 20150309
  Receipt Date: 20150309
  Transmission Date: 20150721
  Serious: Yes (Disabling)
  Sender: FDA-Public Use
  Company Number: None

PATIENT
  Age: 68 Year
  Sex: Male
  Weight: 70.31 kg

DRUGS (14)
  1. BUTRANS [Concomitant]
     Active Substance: BUPRENORPHINE
  2. VITAMIN D3 [Concomitant]
     Active Substance: CHOLECALCIFEROL
  3. NORCO [Concomitant]
     Active Substance: ACETAMINOPHEN\HYDROCODONE BITARTRATE
  4. MULTIVITAMINS [Concomitant]
     Active Substance: VITAMINS
  5. ACETEMENAPHIN [Concomitant]
  6. RESTORIL [Concomitant]
     Active Substance: TEMAZEPAM
  7. DULOXETINE HCL [Suspect]
     Active Substance: DULOXETINE HYDROCHLORIDE
     Indication: IRRITABILITY
     Dosage: 2 PILLULES. TAKEN BY MOUTH
     Route: 048
  8. LEVOTHYROXINE SODIUM. [Concomitant]
     Active Substance: LEVOTHYROXINE SODIUM
  9. MULTIVITAMINS AND D3 [Concomitant]
  10. LYRICA [Concomitant]
     Active Substance: PREGABALIN
  11. IBUPROFEN. [Concomitant]
     Active Substance: IBUPROFEN
  12. TRAZODONE [Concomitant]
     Active Substance: TRAZODONE HYDROCHLORIDE
  13. ALOE VERA [Concomitant]
     Active Substance: ALOE VERA LEAF
  14. DULOXETINE HCL [Suspect]
     Active Substance: DULOXETINE HYDROCHLORIDE
     Dosage: 2 PILLULES. TAKEN BY MOUTH
     Route: 048

REACTIONS (3)
  - Pain in extremity [None]
  - Gait disturbance [None]
  - Malaise [None]

NARRATIVE: CASE EVENT DATE: 20150226
